FAERS Safety Report 7297506-7 (Version None)
Quarter: 2011Q1

REPORT INFORMATION
  Report Type: 
  Country: None (occurrence: None)
  Receive Date: 20110216
  Receipt Date: 20110212
  Transmission Date: 20110831
  Serious: Yes (Other)
  Sender: FDA-Public Use
  Company Number: US-PFIZER INC-2009184568

PATIENT
  Sex: Female
  Weight: 72.562 kg

DRUGS (17)
  1. GEODON [Suspect]
     Indication: BIPOLAR I DISORDER
     Dosage: 20 MG, 1X/DAY
  2. GEODON [Suspect]
     Dosage: 80 MG, UNK
  3. GEODON [Suspect]
     Dosage: 20 MG, 2X/DAY
     Dates: start: 20110119
  4. GEODON [Suspect]
     Dosage: 10 MG, UNK
  5. THYROID TAB [Concomitant]
     Dosage: UNK
  6. GEODON [Suspect]
     Indication: BIPOLAR DISORDER
     Dosage: 100 MG, 3X/DAY
  7. GEODON [Suspect]
     Indication: ANXIETY
     Dosage: 20 MG, UNK
  8. GEODON [Suspect]
     Dosage: 40 MG, UNK
  9. VISTARIL [Concomitant]
     Dosage: UNK
     Dates: start: 20090301, end: 20090101
  10. GEODON [Suspect]
     Dosage: 80 MG, UNK
  11. ACETAMINOPHEN [Concomitant]
     Dosage: UNK
  12. NEURONTIN [Concomitant]
     Dosage: UNK
  13. GEODON [Suspect]
     Dosage: 60 MG, UNK
  14. GEODON [Suspect]
     Dosage: 20 MG, UNK
     Dates: end: 20090601
  15. GEODON [Suspect]
     Indication: POST-TRAUMATIC STRESS DISORDER
     Dosage: 100 MG, AS NEEDED
     Route: 048
     Dates: start: 20030601
  16. GEODON [Suspect]
     Dosage: 20 MG DAILY
  17. LEVOTHYROXINE SODIUM [Concomitant]
     Indication: HYPOTHYROIDISM
     Dosage: 0.15 MG, UNK

REACTIONS (49)
  - WRONG TECHNIQUE IN DRUG USAGE PROCESS [None]
  - PORPHYRIA [None]
  - WEIGHT INCREASED [None]
  - SOMNOLENCE [None]
  - ADVERSE REACTION [None]
  - PNEUMONIA [None]
  - DYSPNOEA [None]
  - OEDEMA PERIPHERAL [None]
  - NAUSEA [None]
  - DRY EYE [None]
  - HYPOTONIA [None]
  - SYPHILIS [None]
  - PAIN [None]
  - INAPPROPRIATE SCHEDULE OF DRUG ADMINISTRATION [None]
  - OSTEOARTHRITIS [None]
  - PSYCHOTIC DISORDER [None]
  - GASTROINTESTINAL OEDEMA [None]
  - INSOMNIA [None]
  - ANGER [None]
  - PRURITUS [None]
  - EYE PAIN [None]
  - DIABETES MELLITUS [None]
  - GASTROINTESTINAL INFLAMMATION [None]
  - IRRITABILITY [None]
  - POLLAKIURIA [None]
  - ASTHENIA [None]
  - INCREASED APPETITE [None]
  - MUSCLE TWITCHING [None]
  - THYROIDITIS [None]
  - DIABETES INSIPIDUS [None]
  - PHARYNGEAL OEDEMA [None]
  - RASH [None]
  - MIGRAINE [None]
  - GASTROINTESTINAL CANDIDIASIS [None]
  - OEDEMA MOUTH [None]
  - EXOPHTHALMOS [None]
  - BONE PAIN [None]
  - SLEEP DISORDER [None]
  - INFLUENZA [None]
  - JOINT SWELLING [None]
  - MUSCLE TIGHTNESS [None]
  - NASAL DRYNESS [None]
  - FEELING HOT [None]
  - GASTROINTESTINAL DISORDER [None]
  - SWELLING [None]
  - MALAISE [None]
  - DECREASED APPETITE [None]
  - HYPOAESTHESIA [None]
  - HEADACHE [None]
